FAERS Safety Report 5444264-4 (Version None)
Quarter: 2007Q3

REPORT INFORMATION
  Report Type: 
  Country: None (occurrence: None)
  Receive Date: 20070904
  Receipt Date: 20070904
  Transmission Date: 20080115
  Serious: Yes (Disabling, Other)
  Sender: FDA-Public Use
  Company Number: None

PATIENT
  Sex: Female
  Weight: 72.5755 kg

DRUGS (2)
  1. LOTREL [Suspect]
     Indication: BLOOD PRESSURE DECREASED
     Dosage: 1 A DAY PO
     Route: 048
     Dates: start: 20070307, end: 20070522
  2. HYDROCHLOROTHIAZIDE 25MG TAB [Suspect]
     Dosage: 1 A DAY PO
     Route: 048
     Dates: start: 20070307, end: 20070522

REACTIONS (2)
  - ALANINE AMINOTRANSFERASE INCREASED [None]
  - ASPARTATE AMINOTRANSFERASE INCREASED [None]
